FAERS Safety Report 21031646 (Version 1)
Quarter: 2022Q3

REPORT INFORMATION
  Report Type: Spontaneous
  Country: US (occurrence: None)
  Receive Date: 20220701
  Receipt Date: 20220701
  Transmission Date: 20221027
  Serious: No
  Sender: FDA-Public Use
  Company Number: US-ROCHE-2998710

PATIENT
  Sex: Male

DRUGS (1)
  1. ACTEMRA [Suspect]
     Active Substance: TOCILIZUMAB
     Indication: Rheumatoid arthritis
     Dosage: STRENGTH 400MG/20ML (DOSE EQUAL TO 8MG/KG)
     Route: 041
     Dates: start: 20201117

REACTIONS (2)
  - Drug ineffective [Unknown]
  - No adverse event [Unknown]
